FAERS Safety Report 5420518-2 (Version None)
Quarter: 2007Q3

REPORT INFORMATION
  Report Type: 
  Country: None (occurrence: None)
  Receive Date: 20070821
  Receipt Date: 20060808
  Transmission Date: 20080115
  Serious: No
  Sender: FDA-Public Use
  Company Number: US-KINGPHARMUSA00001-K200601036

PATIENT

DRUGS (2)
  1. CYTOMEL [Suspect]
     Indication: HYPOTHYROIDISM
     Dosage: 25 MCG, UNK
     Route: 048
     Dates: start: 20051201
  2. ZELNORM [Concomitant]
     Dosage: 6 MG, BID
     Route: 048
     Dates: start: 20051201, end: 20060501

REACTIONS (1)
  - HYPERTENSION [None]
